FAERS Safety Report 18834439 (Version 2)
Quarter: 2021Q1

REPORT INFORMATION
  Report Type: Spontaneous
  Country: GB (occurrence: GB)
  Receive Date: 20210203
  Receipt Date: 20210322
  Transmission Date: 20210419
  Serious: Yes (Hospitalization)
  Sender: FDA-Public Use
  Company Number: GB-AMGEN-GBRSP2021016767

PATIENT
  Age: 88 Year
  Sex: Male

DRUGS (1)
  1. ENBREL [Suspect]
     Active Substance: ETANERCEPT
     Indication: RHEUMATOID ARTHRITIS
     Dosage: 50 MG, WEEKLY
     Route: 058
     Dates: start: 20200901

REACTIONS (4)
  - Fall [Unknown]
  - Rheumatoid arthritis [Unknown]
  - Wrong technique in product usage process [Unknown]
  - Drug ineffective [Unknown]
